FAERS Safety Report 18951283 (Version 3)
Quarter: 2021Q2

REPORT INFORMATION
  Report Type: Spontaneous
  Country: FR (occurrence: FR)
  Receive Date: 20210228
  Receipt Date: 20210505
  Transmission Date: 20210717
  Serious: Yes (Death, Life-Threatening, Hospitalization, Other)
  Sender: FDA-Public Use
  Company Number: FR-AUROBINDO-AUR-APL-2021-007597

PATIENT
  Age: 37 Year
  Sex: Male

DRUGS (1)
  1. OXYCODONE [Suspect]
     Active Substance: OXYCODONE
     Indication: PAIN
     Dosage: UNK
     Route: 048

REACTIONS (24)
  - Coma [Fatal]
  - Toxicity to various agents [Fatal]
  - Rhabdomyolysis [Recovered/Resolved]
  - Metabolic acidosis [Recovered/Resolved]
  - Disseminated intravascular coagulation [Recovered/Resolved]
  - Hepatocellular injury [Recovering/Resolving]
  - Toxic leukoencephalopathy [Fatal]
  - Brain injury [Fatal]
  - Acute kidney injury [Recovered/Resolved]
  - Loss of consciousness [Unknown]
  - Hyperthermia [Recovered/Resolved]
  - Bradypnoea [Recovered/Resolved]
  - Overdose [Fatal]
  - Poisoning [Fatal]
  - Renal failure [Recovering/Resolving]
  - Miosis [Recovered/Resolved]
  - Hepatic failure [Recovered/Resolved]
  - Intentional overdose [Fatal]
  - Seizure [Fatal]
  - Hyperlactacidaemia [Recovered/Resolved]
  - Condition aggravated [Fatal]
  - Hypoxia [Recovered/Resolved]
  - Hyperkalaemia [Recovered/Resolved]
  - Hyperhidrosis [Recovered/Resolved]
